FAERS Safety Report 6487193-X (Version None)
Quarter: 2009Q4

REPORT INFORMATION
  Report Type: 
  Country: None (occurrence: None)
  Receive Date: 20091209
  Receipt Date: 20091209
  Transmission Date: 20100525
  Serious: Yes (Hospitalization)
  Sender: FDA-Public Use
  Company Number: None

PATIENT
  Sex: Male
  Weight: 92.5338 kg

DRUGS (12)
  1. ZACTIMA [Suspect]
     Indication: DISEASE RECURRENCE
     Dosage: 200 MG ONCE DAILY PO; 100 MG ONCE DAILY PO
     Route: 048
     Dates: start: 20090910, end: 20091116
  2. ZACTIMA [Suspect]
     Indication: GLIOBLASTOMA MULTIFORME
     Dosage: 200 MG ONCE DAILY PO; 100 MG ONCE DAILY PO
     Route: 048
     Dates: start: 20090910, end: 20091116
  3. ZACTIMA [Suspect]
     Indication: DISEASE RECURRENCE
     Dosage: 200 MG ONCE DAILY PO; 100 MG ONCE DAILY PO
     Route: 048
     Dates: start: 20091124, end: 20091127
  4. ZACTIMA [Suspect]
     Indication: GLIOBLASTOMA MULTIFORME
     Dosage: 200 MG ONCE DAILY PO; 100 MG ONCE DAILY PO
     Route: 048
     Dates: start: 20091124, end: 20091127
  5. KEPPRA (ANTI-SEIZURE) [Concomitant]
  6. FLUOXITINE (DEPRESSION) [Concomitant]
  7. BACLOFEN (MUSCLE RELAXANT) [Concomitant]
  8. WARFARIN (ANTICOAGULANT) [Concomitant]
  9. ZOFRAN (PRN FOR NAUSEA) [Concomitant]
  10. OXYCODONE (PAIN) [Concomitant]
  11. PROCHLORPERAZINE (PRN FOR NAUSEA) [Concomitant]
  12. DOXYCYCLINE (FOR INFECTED SKIN RASH) [Concomitant]

REACTIONS (9)
  - ABASIA [None]
  - CEREBRAL HAEMORRHAGE [None]
  - COMMUNICATION DISORDER [None]
  - ELECTROCARDIOGRAM QT PROLONGED [None]
  - FATIGUE [None]
  - INTERNATIONAL NORMALISED RATIO INCREASED [None]
  - INTRACRANIAL HAEMATOMA [None]
  - MIDDLE INSOMNIA [None]
  - UNRESPONSIVE TO STIMULI [None]
